FAERS Safety Report 4525805-8 (Version None)
Quarter: 2005Q1

REPORT INFORMATION
  Report Type: 
  Country: None (occurrence: None)
  Receive Date: 20041116
  Receipt Date: 20040812
  Transmission Date: 20050727
  Serious: Yes (Other)
  Sender: FDA-Public Use
  Company Number: S04-USA-05879-01

PATIENT
  Age: 82 Year
  Sex: Female

DRUGS (7)
  1. NAMENDA [Suspect]
     Indication: AMNESIA
     Dosage: 5 MG QD PO
     Route: 048
     Dates: start: 20040715, end: 20040101
  2. NAMENDA [Suspect]
     Indication: AMNESIA
     Dosage: 5 MG BID PO
     Route: 048
     Dates: start: 20040101, end: 20040101
  3. NAMENDA [Suspect]
     Indication: AMNESIA
     Dosage: 5 MG QAM PO
     Route: 048
     Dates: start: 20040101, end: 20040101
  4. NAMENDA [Suspect]
     Indication: AMNESIA
     Dosage: 10 MG BID PO
     Route: 048
     Dates: start: 20040101
  5. ARICEPT (DOMEPEZIL HYDROCHLORIDE) [Concomitant]
  6. SEROQUEL [Concomitant]
  7. IBUPROFEN [Concomitant]

REACTIONS (3)
  - FALL [None]
  - MEDICATION ERROR [None]
  - WRIST FRACTURE [None]
